FAERS Safety Report 11721165 (Version 3)
Quarter: 2015Q4

REPORT INFORMATION
  Report Type: Spontaneous
  Country: BR (occurrence: BR)
  Receive Date: 20151110
  Receipt Date: 20151123
  Transmission Date: 20160304
  Serious: Yes (Death, Hospitalization)
  Sender: FDA-Public Use
  Company Number: BR-PFIZER INC-2015353329

PATIENT
  Age: 63 Year
  Sex: Male
  Weight: 58 kg

DRUGS (2)
  1. SUTENT [Suspect]
     Active Substance: SUNITINIB MALATE
     Indication: METASTATIC RENAL CELL CARCINOMA
     Dosage: 50 MG, CYCLIC (4X2)
     Route: 048
     Dates: start: 20141118, end: 20141216
  2. DIPIRONE [Concomitant]
     Active Substance: METAMIZOLE SODIUM
     Indication: PAIN
     Dosage: WHEN FEELING PAINS
     Dates: start: 2013

REACTIONS (8)
  - Disease progression [Fatal]
  - Metastatic renal cell carcinoma [Fatal]
  - Abdominal pain upper [Not Recovered/Not Resolved]
  - Gastric disorder [Not Recovered/Not Resolved]
  - Coma [Not Recovered/Not Resolved]
  - Herpes virus infection [Recovered/Resolved]
  - Hypovolaemic shock [Fatal]
  - Epistaxis [Unknown]

NARRATIVE: CASE EVENT DATE: 2015
